FAERS Safety Report 13373578 (Version 1)
Quarter: 2017Q1

REPORT INFORMATION
  Report Type: Spontaneous
  Country: CA (occurrence: CA)
  Receive Date: 20170327
  Receipt Date: 20170327
  Transmission Date: 20170429
  Serious: No
  Sender: FDA-Public Use
  Company Number: CA-HILL DERMACEUTICALS, INC.-1064680

PATIENT
  Age: 58 Year
  Sex: Female

DRUGS (1)
  1. DERMOTIC [Suspect]
     Active Substance: FLUOCINOLONE ACETONIDE
     Indication: ECZEMA
     Route: 001
     Dates: start: 20160801, end: 20160802

REACTIONS (2)
  - Drug ineffective [Unknown]
  - Product quality issue [None]
